FAERS Safety Report 7680815-7 (Version None)
Quarter: 2011Q3

REPORT INFORMATION
  Report Type: 
  Country: None (occurrence: None)
  Receive Date: 20110812
  Receipt Date: 20110808
  Transmission Date: 20111222
  Serious: Yes (Life-Threatening, Hospitalization, Disabling)
  Sender: FDA-Public Use
  Company Number: US-MERCK-1107USA03200

PATIENT
  Sex: Female

DRUGS (3)
  1. AMARYL [Concomitant]
     Route: 065
  2. JANUVIA [Suspect]
     Indication: HYPERGLYCAEMIA
     Route: 048
  3. GLUCOPHAGE [Concomitant]
     Route: 065

REACTIONS (3)
  - VIITH NERVE PARALYSIS [None]
  - HYPOGLYCAEMIA [None]
  - LACUNAR INFARCTION [None]
